FAERS Safety Report 5682776-9 (Version None)
Quarter: 2008Q1

REPORT INFORMATION
  Report Type: 
  Country: None (occurrence: None)
  Receive Date: 20080327
  Receipt Date: 20080319
  Transmission Date: 20080703
  Serious: Yes (Hospitalization)
  Sender: FDA-Public Use
  Company Number: GB-ROCHE-554244

PATIENT
  Age: 63 Year
  Sex: Female
  Weight: 99.3 kg

DRUGS (2)
  1. ORLISTAT [Suspect]
     Indication: OBESITY
     Route: 048
     Dates: start: 20071129
  2. UNSPECIFIED DRUGS [Concomitant]

REACTIONS (2)
  - CONTUSION [None]
  - FALL [None]
